FAERS Safety Report 7754452-X (Version None)
Quarter: 2011Q3

REPORT INFORMATION
  Report Type: 
  Country: None (occurrence: None)
  Receive Date: 20110915
  Receipt Date: 20110905
  Transmission Date: 20111222
  Serious: Yes (Hospitalization)
  Sender: FDA-Public Use
  Company Number: DE-GILEAD-E2B_00001481

PATIENT
  Sex: Female

DRUGS (10)
  1. AMBRISENTAN [Suspect]
     Route: 048
  2. ASPIRIN [Concomitant]
     Route: 065
  3. REVATIO [Concomitant]
     Route: 065
  4. DIGIMERCK [Concomitant]
     Route: 065
  5. AMBRISENTAN [Suspect]
     Route: 048
  6. MAGIUM K FORTE [Concomitant]
     Route: 065
  7. TORSEMIDE [Concomitant]
     Route: 065
  8. TRACLEER [Concomitant]
     Indication: HEPATIC FUNCTION ABNORMAL
     Route: 065
  9. AMBRISENTAN [Suspect]
     Indication: PULMONARY ARTERIAL HYPERTENSION
     Dosage: 5MG SEE DOSAGE TEXT
     Route: 048
     Dates: end: 20010901
  10. CANDESARTAN CILEXETIL [Concomitant]
     Route: 065

REACTIONS (14)
  - EYE PAIN [None]
  - DEPRESSION [None]
  - CHAPPED LIPS [None]
  - GALLBLADDER PAIN [None]
  - CARDIAC ARREST [None]
  - LIP DRY [None]
  - DECREASED APPETITE [None]
  - FLUSHING [None]
  - HEADACHE [None]
  - MUCOSAL DRYNESS [None]
  - PALPITATIONS [None]
  - CHOLELITHIASIS [None]
  - LISTLESS [None]
  - NASAL DRYNESS [None]
